FAERS Safety Report 16884840 (Version 1)
Quarter: 2019Q4

REPORT INFORMATION
  Report Type: Spontaneous
  Country: US (occurrence: US)
  Receive Date: 20191004
  Receipt Date: 20191004
  Transmission Date: 20200122
  Serious: Yes (Hospitalization)
  Sender: FDA-Public Use
  Company Number: US-MYLANLABS-2019M1093159

PATIENT
  Age: 53 Year
  Sex: Female

DRUGS (3)
  1. LITHIUM. [Suspect]
     Active Substance: LITHIUM
     Indication: SCHIZOAFFECTIVE DISORDER
     Dosage: INITIAL DOSE
     Route: 065
     Dates: end: 2016
  2. LITHIUM. [Suspect]
     Active Substance: LITHIUM
     Dosage: 1200 MILLIGRAM
     Route: 065
     Dates: start: 2016, end: 201609
  3. LURASIDONE [Concomitant]
     Active Substance: LURASIDONE
     Indication: SCHIZOAFFECTIVE DISORDER
     Route: 065

REACTIONS (8)
  - Toxicity to various agents [Recovering/Resolving]
  - Nephrogenic diabetes insipidus [Recovering/Resolving]
  - Hypercalcaemia [Recovering/Resolving]
  - Proteinuria [Unknown]
  - Lethargy [Unknown]
  - Hyperparathyroidism [Recovered/Resolved]
  - Parathyroid tumour benign [Recovered/Resolved]
  - Goitre [Recovered/Resolved]
